FAERS Safety Report 21570056 (Version 1)
Quarter: 2022Q4

REPORT INFORMATION
  Report Type: Spontaneous
  Country: None (occurrence: ES)
  Receive Date: 20221109
  Receipt Date: 20221109
  Transmission Date: 20230113
  Serious: Yes (Other)
  Sender: FDA-Public Use
  Company Number: ES-AKCEA THERAPEUTICS, INC.-2022IS004233

PATIENT
  Sex: Female

DRUGS (2)
  1. TEGSEDI [Suspect]
     Active Substance: INOTERSEN SODIUM
     Indication: Product used for unknown indication
     Route: 065
  2. DEVICE [Suspect]
     Active Substance: DEVICE

REACTIONS (3)
  - Angioedema [Recovered/Resolved]
  - Blood creatinine increased [Recovered/Resolved]
  - Platelet count decreased [Recovered/Resolved]
